FAERS Safety Report 22151564 (Version 1)
Quarter: 2023Q1

REPORT INFORMATION
  Report Type: Spontaneous
  Country: US (occurrence: None)
  Receive Date: 20230328
  Receipt Date: 20230328
  Transmission Date: 20230418
  Serious: No
  Sender: FDA-Public Use
  Company Number: None

PATIENT
  Age: 73 Year
  Sex: Female
  Weight: 68.49 kg

DRUGS (11)
  1. BRAFTOVI [Suspect]
     Active Substance: ENCORAFENIB
     Indication: Colon cancer
     Dosage: FREQUENCY : DAILY;?
     Route: 048
  2. AMLODIPINE [Concomitant]
  3. CENTRUM SILVER [Concomitant]
  4. COVID-19 MRNA VACCINE [Concomitant]
  5. KLOR-CON [Concomitant]
  6. LORAZEPAM [Concomitant]
  7. METOPROLOL [Concomitant]
  8. MIRALAX [Concomitant]
  9. OMEPRAZOLE [Concomitant]
  10. OXYCODONE [Concomitant]
  11. PRESERVISION AREDS [Concomitant]

REACTIONS (1)
  - Hospice care [None]
